FAERS Safety Report 24788375 (Version 1)
Quarter: 2024Q4

REPORT INFORMATION
  Report Type: Spontaneous
  Country: US (occurrence: US)
  Receive Date: 20241230
  Receipt Date: 20241230
  Transmission Date: 20250115
  Serious: No
  Sender: SANOFI AVENTIS
  Company Number: US-SA-2024SA383134

PATIENT
  Age: 80 Year
  Sex: Female

DRUGS (12)
  1. DUPIXENT [Suspect]
     Active Substance: DUPILUMAB
     Indication: Dermatitis atopic
     Dosage: 300 MG, QOW
     Route: 058
     Dates: start: 20241210
  2. CALCIUM [Concomitant]
     Active Substance: CALCIUM
  3. DILTIAZEM HYDROCHLORIDE [Concomitant]
     Active Substance: DILTIAZEM HYDROCHLORIDE
  4. ELIQUIS [Concomitant]
     Active Substance: APIXABAN
  5. GABAPENTIN [Concomitant]
     Active Substance: GABAPENTIN
  6. HYDROXYZINE [Concomitant]
     Active Substance: HYDROXYZINE HYDROCHLORIDE
  7. NAC [Concomitant]
  8. NEBIVOLOL [Concomitant]
     Active Substance: NEBIVOLOL
  9. PREDNISONE [Concomitant]
     Active Substance: PREDNISONE
  10. SERTRALINE HYDROCHLORIDE [Concomitant]
     Active Substance: SERTRALINE HYDROCHLORIDE
  11. VALACYCLOVIR [Concomitant]
     Active Substance: VALACYCLOVIR HYDROCHLORIDE
  12. VITAMIN B12 [Concomitant]
     Active Substance: CYANOCOBALAMIN

REACTIONS (7)
  - Skin weeping [Not Recovered/Not Resolved]
  - Scratch [Not Recovered/Not Resolved]
  - Scab [Not Recovered/Not Resolved]
  - Dry skin [Not Recovered/Not Resolved]
  - Visual impairment [Not Recovered/Not Resolved]
  - Pruritus [Not Recovered/Not Resolved]
  - Drug ineffective [Unknown]

NARRATIVE: CASE EVENT DATE: 20241201
